FAERS Safety Report 9501917 (Version 2)
Quarter: 2013Q3

REPORT INFORMATION
  Report Type: Report from Study
  Country: US (occurrence: US)
  Receive Date: 20130905
  Receipt Date: 20130905
  Transmission Date: 20140515
  Serious: Yes (Hospitalization)
  Sender: FDA-Public Use
  Company Number: US-ACTELION-A-NJ2013-86978

PATIENT
  Age: 48 Year
  Sex: Female

DRUGS (2)
  1. VELETRI [Suspect]
     Indication: PULMONARY ARTERIAL HYPERTENSION
     Dosage: 26 NG/KG, PER MIN
     Route: 042
     Dates: start: 20101221
  2. COUMADIN [Concomitant]

REACTIONS (5)
  - Gastrointestinal disorder [Unknown]
  - Headache [Unknown]
  - Diarrhoea [Unknown]
  - Asthenia [Unknown]
  - Malaise [Unknown]
